FAERS Safety Report 25173716 (Version 1)
Quarter: 2025Q2

REPORT INFORMATION
  Report Type: Spontaneous
  Country: US (occurrence: US)
  Receive Date: 20250408
  Receipt Date: 20250408
  Transmission Date: 20250717
  Serious: No
  Sender: FRESENIUS KABI
  Company Number: US-FreseniusKabi-FK202504995

PATIENT
  Age: 14 Year
  Sex: Female
  Weight: 51.7 kg

DRUGS (4)
  1. DEFEROXAMINE MESYLATE [Suspect]
     Active Substance: DEFEROXAMINE MESYLATE
     Indication: Haemochromatosis
     Dosage: FORM OF ADMINISTRATION: INJECTION?DOSE: 2000 MG (21ML), NIGHTLY OVER 8 HOURS, VIA PUMP?THERAPY END D
     Route: 058
     Dates: start: 202408, end: 202503
  2. DEFEROXAMINE MESYLATE [Suspect]
     Active Substance: DEFEROXAMINE MESYLATE
     Indication: Red blood cell transfusion
     Dosage: FORM OF ADMINISTRATION: INJECTION?DOSE: 2000 MG (21ML), NIGHTLY OVER 8 HOURS, VIA PUMP?THERAPY START
     Route: 058
     Dates: start: 202503
  3. DEFEROXAMINE MESYLATE [Suspect]
     Active Substance: DEFEROXAMINE MESYLATE
     Dosage: FORM OF ADMINISTRATION: INJECTION?DOSE: 2000 MG (21ML), NIGHTLY OVER 8 HOURS, VIA PUMP?THERAPY START
     Route: 058
     Dates: start: 202503
  4. DEFEROXAMINE MESYLATE [Suspect]
     Active Substance: DEFEROXAMINE MESYLATE
     Dosage: FORM OF ADMINISTRATION: INJECTION?DOSE: 2000 MG (21ML), NIGHTLY OVER 8 HOURS, VIA PUMP?THERAPY START
     Route: 058
     Dates: start: 202503

REACTIONS (3)
  - Product storage error [Unknown]
  - Injection site scar [Not Recovered/Not Resolved]
  - Injection site pain [Not Recovered/Not Resolved]

NARRATIVE: CASE EVENT DATE: 20250301
